FAERS Safety Report 8114454-0 (Version None)
Quarter: 2012Q1

REPORT INFORMATION
  Report Type: 
  Country: None (occurrence: None)
  Receive Date: 20120206
  Receipt Date: 20120126
  Transmission Date: 20120608
  Serious: No
  Sender: FDA-Public Use
  Company Number: US-BIOGENIDEC-2011BI031159

PATIENT
  Sex: Female

DRUGS (2)
  1. AVONEX [Suspect]
     Indication: MULTIPLE SCLEROSIS
     Route: 030
     Dates: start: 20021007, end: 20061002
  2. AVONEX [Suspect]
     Route: 030
     Dates: start: 20101022

REACTIONS (7)
  - DIARRHOEA [None]
  - NAUSEA [None]
  - RHEUMATOID ARTHRITIS [None]
  - GASTRITIS [None]
  - MULTIPLE SCLEROSIS RELAPSE [None]
  - COLITIS [None]
  - VOMITING [None]
